FAERS Safety Report 10971910 (Version 1)
Quarter: 2015Q1

REPORT INFORMATION
  Report Type: Spontaneous
  Country: US (occurrence: None)
  Receive Date: 20150330
  Receipt Date: 20150330
  Transmission Date: 20150721
  Serious: Yes (Disabling)
  Sender: FDA-Public Use
  Company Number: None

PATIENT
  Age: 67 Year
  Sex: Male

DRUGS (7)
  1. AMOX/CLAV [Concomitant]
     Active Substance: AMOXICILLIN\CLAVULANATE POTASSIUM
  2. FLOMAX [Concomitant]
     Active Substance: TAMSULOSIN HYDROCHLORIDE
  3. IBUPROFEN. [Concomitant]
     Active Substance: IBUPROFEN
  4. HERBAL TEA [Concomitant]
  5. FLEXERIL [Suspect]
     Active Substance: CYCLOBENZAPRINE HYDROCHLORIDE
     Indication: NECK INJURY
     Dosage: PILLS (90) BY MOUTH
     Route: 048
     Dates: start: 20141217, end: 20150107
  6. FINASTERIDE. [Concomitant]
     Active Substance: FINASTERIDE
  7. ASPIRIN. [Concomitant]
     Active Substance: ASPIRIN

REACTIONS (6)
  - Blood urine present [None]
  - Chills [None]
  - Anxiety [None]
  - Urinary retention [None]
  - Malaise [None]
  - Pain [None]

NARRATIVE: CASE EVENT DATE: 20150107
